FAERS Safety Report 8471711-6 (Version None)
Quarter: 2012Q2

REPORT INFORMATION
  Report Type: 
  Country: None (occurrence: None)
  Receive Date: 20120627
  Receipt Date: 20120613
  Transmission Date: 20120825
  Serious: Yes (Other)
  Sender: FDA-Public Use
  Company Number: CH-GLAXOSMITHKLINE-B0800006A

PATIENT
  Sex: Male
  Weight: 65 kg

DRUGS (7)
  1. CALCIUM [Concomitant]
     Route: 048
  2. ARANESP [Concomitant]
  3. PROMACTA [Suspect]
     Indication: IDIOPATHIC THROMBOCYTOPENIC PURPURA
     Route: 048
     Dates: start: 20111021, end: 20120221
  4. IMIPENEM AND CILASTATIN SODIUM [Concomitant]
     Route: 042
     Dates: start: 20120114, end: 20120117
  5. PREDNISONE TAB [Concomitant]
     Route: 048
     Dates: end: 20120117
  6. ROCALTROL [Concomitant]
     Route: 048
  7. METOPROLOL TARTRATE [Concomitant]
     Route: 048

REACTIONS (1)
  - PRURITUS [None]
